FAERS Safety Report 9123307 (Version 1)
Quarter: 2013Q1

REPORT INFORMATION
  Report Type: Spontaneous
  Country: US (occurrence: US)
  Receive Date: 20130227
  Receipt Date: 20130227
  Transmission Date: 20140127
  Serious: Yes (Other)
  Sender: FDA-Public Use
  Company Number: US-PFIZER INC-2013066597

PATIENT
  Age: 26 Year
  Sex: Male
  Weight: 68.03 kg

DRUGS (1)
  1. BENEFIX [Suspect]
     Indication: FACTOR IX DEFICIENCY
     Dosage: 50 IU/KG, AS NEEDED (FOR ON-DEMAND USE PER INFUSION)

REACTIONS (2)
  - Haemorrhage [Unknown]
  - Joint injury [Unknown]
